FAERS Safety Report 24837316 (Version 1)
Quarter: 2025Q1

REPORT INFORMATION
  Report Type: Spontaneous
  Country: US (occurrence: None)
  Receive Date: 20250111
  Receipt Date: 20250111
  Transmission Date: 20250409
  Serious: Yes (Hospitalization)
  Sender: FDA-CTU
  Company Number: None

PATIENT
  Age: 42 Year
  Sex: Female
  Weight: 89.1 kg

DRUGS (4)
  1. TAMIFLU [Suspect]
     Active Substance: OSELTAMIVIR PHOSPHATE
     Dates: start: 20250107, end: 20250109
  2. CEFEPIME [Suspect]
     Active Substance: CEFEPIME HYDROCHLORIDE
  3. DOXYCYCLINE [Suspect]
     Active Substance: DOXYCYCLINE
  4. PREDNISONE [Suspect]
     Active Substance: PREDNISONE

REACTIONS (2)
  - Heart rate decreased [None]
  - Nodal rhythm [None]

NARRATIVE: CASE EVENT DATE: 20250109
